FAERS Safety Report 21209687 (Version 1)
Quarter: 2022Q3

REPORT INFORMATION
  Report Type: Spontaneous
  Country: BE (occurrence: None)
  Receive Date: 20220813
  Receipt Date: 20220813
  Transmission Date: 20221027
  Serious: Yes (Hospitalization, Other)
  Sender: FDA-Public Use
  Company Number: 2022A281654

PATIENT
  Age: 66 Year
  Sex: Female

DRUGS (4)
  1. BENRALIZUMAB [Suspect]
     Active Substance: BENRALIZUMAB
     Indication: Asthma
     Dosage: 30 MG
     Route: 058
  2. METHYLPREDNISOLONE [Concomitant]
     Active Substance: METHYLPREDNISOLONE
     Dosage: ADMINISTERED (1000 MG IV/DAY FOR 3 DAYS), FOLLOWED BY ORAL MAINTENANCE WITH METHYLPREDNISOLONE 32...
     Route: 065
  3. ASPIRIN [Concomitant]
     Active Substance: ASPIRIN
  4. CYCLOPHOSPHAMIDE [Concomitant]
     Active Substance: CYCLOPHOSPHAMIDE
     Route: 065

REACTIONS (6)
  - Eosinophilic granulomatosis with polyangiitis [Unknown]
  - Disability [Unknown]
  - Neuralgia [Unknown]
  - Monoplegia [Unknown]
  - Amyotrophy [Unknown]
  - General physical health deterioration [Unknown]
